FAERS Safety Report 7236136-X (Version None)
Quarter: 2011Q1

REPORT INFORMATION
  Report Type: 
  Country: None (occurrence: None)
  Receive Date: 20110120
  Receipt Date: 20110113
  Transmission Date: 20110831
  Serious: Yes (Other)
  Sender: FDA-Public Use
  Company Number: US-JNJFOC-20110104847

PATIENT
  Sex: Female
  Weight: 77.11 kg

DRUGS (6)
  1. KLONOPIN [Concomitant]
     Indication: PAIN
     Route: 048
  2. AMITRIPTYLINE HCL [Concomitant]
     Indication: DEPRESSION
     Route: 048
  3. XANAX [Concomitant]
     Indication: ANXIETY
     Route: 048
  4. FENTANYL-100 [Suspect]
     Indication: RADICULAR PAIN
     Dosage: NDC-0781-7244-55
     Route: 062
  5. ADDERALL 10 [Concomitant]
     Indication: ATTENTION DEFICIT/HYPERACTIVITY DISORDER
     Route: 048
  6. PROZAC [Concomitant]
     Indication: DEPRESSION
     Route: 048

REACTIONS (12)
  - INCORRECT DOSE ADMINISTERED [None]
  - DRY MOUTH [None]
  - HYPOVENTILATION [None]
  - CONFUSIONAL STATE [None]
  - GAIT DISTURBANCE [None]
  - SOMNOLENCE [None]
  - ASTHENIA [None]
  - PRURITUS GENERALISED [None]
  - IRRITABILITY [None]
  - FEELING ABNORMAL [None]
  - POOR QUALITY SLEEP [None]
  - ABNORMAL DREAMS [None]
